FAERS Safety Report 14953201 (Version 1)
Quarter: 2018Q2

REPORT INFORMATION
  Report Type: Spontaneous
  Country: RU (occurrence: RU)
  Receive Date: 20180530
  Receipt Date: 20180530
  Transmission Date: 20180711
  Serious: Yes (Other)
  Sender: FDA-Public Use
  Company Number: RU-ASTRAZENECA-2018SE69131

PATIENT

DRUGS (1)
  1. FASLODEX [Suspect]
     Active Substance: FULVESTRANT
     Route: 030
     Dates: start: 201802, end: 201803

REACTIONS (1)
  - Malignant neoplasm progression [Unknown]

NARRATIVE: CASE EVENT DATE: 2016
